FAERS Safety Report 18530247 (Version 1)
Quarter: 2020Q4

REPORT INFORMATION
  Report Type: Spontaneous
  Country: US (occurrence: US)
  Receive Date: 20201121
  Receipt Date: 20201121
  Transmission Date: 20210114
  Serious: Yes (Hospitalization, Other)
  Sender: FDA-Public Use
  Company Number: US-BION-009205

PATIENT
  Age: 65 Year
  Sex: Male

DRUGS (1)
  1. APIXABAN [Suspect]
     Active Substance: APIXABAN
     Indication: ANTICOAGULANT THERAPY

REACTIONS (4)
  - Palpable purpura [Recovering/Resolving]
  - Abdominal pain [Recovered/Resolved]
  - Melaena [Recovered/Resolved]
  - Blood creatinine increased [Recovering/Resolving]
